FAERS Safety Report 6921537-7 (Version None)
Quarter: 2010Q3

REPORT INFORMATION
  Report Type: 
  Country: None (occurrence: None)
  Receive Date: 20100805
  Receipt Date: 20100329
  Transmission Date: 20110219
  Serious: No
  Sender: FDA-Public Use
  Company Number: US-001918

PATIENT
  Sex: Male

DRUGS (2)
  1. DEGARELIX 240 MG [Suspect]
     Dosage: (240 MG 1X/MONTH SUBCUTANEOUS)
     Route: 058
  2. ACETAMINOPHEN [Concomitant]

REACTIONS (1)
  - INJECTION SITE REACTION [None]
